FAERS Safety Report 9846206 (Version 1)
Quarter: 2014Q1

REPORT INFORMATION
  Report Type: Spontaneous
  Country: JP (occurrence: None)
  Receive Date: 20140123
  Receipt Date: 20140123
  Transmission Date: 20141002
  Serious: Yes (Hospitalization)
  Sender: FDA-Public Use
  Company Number: B0947664A

PATIENT
  Age: 80 Year
  Sex: Male

DRUGS (8)
  1. PAROXETINE HYDROCHLORIDE [Suspect]
     Indication: DEPRESSION
     Route: 048
     Dates: start: 20130723, end: 20130826
  2. PAROXETINE HYDROCHLORIDE [Suspect]
     Indication: DEPRESSION
     Route: 048
     Dates: start: 20111028, end: 20130722
  3. BENIDIPINE [Concomitant]
  4. TRAPIDIL [Concomitant]
  5. NITROGLYCERINE [Concomitant]
  6. ETIZOLAM [Concomitant]
  7. WARFARIN SODIUM [Concomitant]
  8. WARFARIN SODIUM [Concomitant]

REACTIONS (11)
  - Inappropriate antidiuretic hormone secretion [None]
  - Dehydration [None]
  - Chest discomfort [None]
  - Chest pain [None]
  - Anxiety [None]
  - Vertigo [None]
  - Nausea [None]
  - Decreased appetite [None]
  - Malaise [None]
  - Dizziness [None]
  - Malnutrition [None]
